FAERS Safety Report 6771117-1 (Version None)
Quarter: 2010Q2

REPORT INFORMATION
  Report Type: 
  Country: None (occurrence: None)
  Receive Date: 20100527
  Receipt Date: 20100507
  Transmission Date: 20101027
  Serious: Yes (Death)
  Sender: FDA-Public Use
  Company Number: GP-10-05-0022

PATIENT
  Age: 61 Year
  Sex: Male

DRUGS (3)
  1. ZONISAMIDE [Suspect]
     Indication: TRIGEMINAL NEURALGIA
     Dosage: U
  2. TOPIMAX (TOPIRAMATE) [Concomitant]
  3. NEURONTIN [Concomitant]

REACTIONS (3)
  - COMPLETED SUICIDE [None]
  - MULTIPLE INJURIES [None]
  - OFF LABEL USE [None]
